FAERS Safety Report 5133083-4 (Version None)
Quarter: 2006Q4

REPORT INFORMATION
  Report Type: 
  Country: None (occurrence: None)
  Receive Date: 20061018
  Receipt Date: 20061011
  Transmission Date: 20070319
  Serious: Yes (Disabling)
  Sender: FDA-Public Use
  Company Number: GXKR2006GB06444

PATIENT
  Age: 66 Year
  Sex: Male

DRUGS (3)
  1. NIFEDIPINE [Suspect]
     Indication: HYPERTENSION
     Dosage: 30 MG, ORAL
     Route: 048
  2. ATENOLOL [Suspect]
  3. SIMVASTATIN [Concomitant]

REACTIONS (1)
  - HYPOKALAEMIA [None]
